FAERS Safety Report 6248201-4 (Version None)
Quarter: 2009Q2

REPORT INFORMATION
  Report Type: 
  Country: None (occurrence: None)
  Receive Date: 20090624
  Receipt Date: 20090624
  Transmission Date: 20091009
  Serious: Yes (Life-Threatening)
  Sender: FDA-Public Use
  Company Number: None

PATIENT
  Sex: Female
  Weight: 113.3993 kg

DRUGS (2)
  1. DILAUDID [Suspect]
     Indication: ABDOMINAL PAIN UPPER
     Dosage: 2 MG Q2H PRN IV (042)
     Route: 042
     Dates: start: 20090520
  2. DILAUDID [Suspect]
     Indication: CHOLELITHIASIS
     Dosage: 2 MG Q2H PRN IV (042)
     Route: 042
     Dates: start: 20090520

REACTIONS (4)
  - ASPIRATION [None]
  - SKIN DISCOLOURATION [None]
  - UNRESPONSIVE TO STIMULI [None]
  - VOMITING [None]
